FAERS Safety Report 16967892 (Version 4)
Quarter: 2020Q3

REPORT INFORMATION
  Report Type: Spontaneous
  Country: US (occurrence: US)
  Receive Date: 20191028
  Receipt Date: 20200909
  Transmission Date: 20201102
  Serious: Yes (Other)
  Sender: FDA-Public Use
  Company Number: US-PFIZER INC-2019448162

PATIENT
  Age: 55 Year
  Sex: Female

DRUGS (2)
  1. DILANTIN [Suspect]
     Active Substance: PHENYTOIN
     Dosage: 300 MG, 1X/DAY (3 TABS PO QHS (EVERY BEDTIME))
     Route: 048
  2. DILANTIN [Suspect]
     Active Substance: PHENYTOIN
     Dosage: 400 MG, (1 TAB DAILY AM(MORNING), 1 TAB DAILY NOON, 2 TABSHS(BED TIME)
     Route: 048

REACTIONS (1)
  - Epilepsy [Unknown]
